FAERS Safety Report 15486478 (Version 2)
Quarter: 2018Q4

REPORT INFORMATION
  Report Type: Spontaneous
  Country: GB (occurrence: GB)
  Receive Date: 20181011
  Receipt Date: 20181220
  Transmission Date: 20190205
  Serious: Yes (Death, Hospitalization)
  Sender: FDA-Public Use
  Company Number: GB-CONCORDIA PHARMACEUTICALS INC.-E2B_00016918

PATIENT
  Age: 85 Year
  Sex: Male
  Weight: 78.1 kg

DRUGS (25)
  1. FOLIC ACID. [Concomitant]
     Active Substance: FOLIC ACID
  2. ONDANSETRON [Concomitant]
     Active Substance: ONDANSETRON
  3. METOCLOPRAMIDE. [Concomitant]
     Active Substance: METOCLOPRAMIDE
  4. VALACICLOVIR [Concomitant]
     Active Substance: VALACYCLOVIR HYDROCHLORIDE
  5. RANITIDINE. [Concomitant]
     Active Substance: RANITIDINE
     Indication: PROPHYLAXIS AGAINST GASTROINTESTINAL ULCER
  6. PREDNISOLONE SODIUM PHOSPHATE. [Concomitant]
     Active Substance: PREDNISOLONE SODIUM PHOSPHATE
     Route: 047
  7. ACETYLSALICYLIC ACID [Concomitant]
     Active Substance: ASPIRIN
  8. CASSIA [Concomitant]
  9. BISOPROLOL [Concomitant]
     Active Substance: BISOPROLOL
  10. DIHYDROCODEINE [Concomitant]
     Active Substance: DIHYDROCODEINE
  11. CLENIL MODULITE [Concomitant]
     Active Substance: BECLOMETHASONE DIPROPIONATE
  12. FUROSEMIDE. [Concomitant]
     Active Substance: FUROSEMIDE
  13. LAXIDO [Concomitant]
     Active Substance: POLYETHYLENE GLYCOL 3350\POTASSIUM CHLORIDE\SODIUM BICARBONATE\SODIUM CHLORIDE
  14. OXYCODONE [Concomitant]
     Active Substance: OXYCODONE
  15. DIGOXIN. [Concomitant]
     Active Substance: DIGOXIN
  16. MONOFER [Concomitant]
     Active Substance: IRON ISOMALTOSIDE 1000
  17. SALMETEROL [Concomitant]
     Active Substance: SALMETEROL
  18. PREDNISOLONE. [Suspect]
     Active Substance: PREDNISOLONE
     Indication: CUTANEOUS VASCULITIS
     Route: 048
     Dates: start: 2018
  19. POTASSIUM PERMANGANATE [Concomitant]
     Active Substance: POTASSIUM PERMANGANATE
     Route: 061
  20. DERMOVATE [Concomitant]
     Active Substance: CLOBETASOL
  21. CYCLIZINE [Concomitant]
     Active Substance: CYCLIZINE
  22. SALBUTAMOL [Concomitant]
     Active Substance: ALBUTEROL
  23. PARACETAMOL [Concomitant]
     Active Substance: ACETAMINOPHEN
  24. CALCIUM CARBONATE. [Concomitant]
     Active Substance: CALCIUM CARBONATE
  25. ENOXAPARIN [Concomitant]
     Active Substance: ENOXAPARIN

REACTIONS (1)
  - Upper gastrointestinal haemorrhage [Fatal]

NARRATIVE: CASE EVENT DATE: 20180920
